FAERS Safety Report 7069471-9 (Version None)
Quarter: 2010Q4

REPORT INFORMATION
  Report Type: 
  Country: None (occurrence: None)
  Receive Date: 20101028
  Receipt Date: 20100420
  Transmission Date: 20110411
  Serious: No
  Sender: FDA-Public Use
  Company Number: US-WYE-H08979309

PATIENT
  Sex: Female
  Weight: 53.57 kg

DRUGS (5)
  1. PROTONIX [Suspect]
     Indication: GASTROOESOPHAGEAL REFLUX DISEASE
     Route: 048
  2. PROTONIX [Suspect]
  3. PROTONIX [Suspect]
  4. KLONOPIN [Concomitant]
  5. LIDODERM [Concomitant]

REACTIONS (7)
  - ABDOMINAL DISCOMFORT [None]
  - ABDOMINAL PAIN UPPER [None]
  - CONSTIPATION [None]
  - DIZZINESS [None]
  - EATING DISORDER [None]
  - GASTRIC PH DECREASED [None]
  - WEIGHT DECREASED [None]
